FAERS Safety Report 11128942 (Version 1)
Quarter: 2015Q2

REPORT INFORMATION
  Report Type: Spontaneous
  Country: CH (occurrence: CH)
  Receive Date: 20150521
  Receipt Date: 20150521
  Transmission Date: 20150821
  Serious: Yes (Congenital Anomaly, Other)
  Sender: FDA-Public Use
  Company Number: PHHY2015CH059313

PATIENT
  Age: 0 Day
  Sex: Male
  Weight: 2.5 kg

DRUGS (6)
  1. TEGRETOL [Suspect]
     Active Substance: CARBAMAZEPINE
     Indication: PRODUCT USED FOR UNKNOWN INDICATION
     Dosage: MATERNAL DOSE: 600 MG, 2 DF/DAY
     Route: 064
  2. URBANYL [Suspect]
     Active Substance: CLOBAZAM
     Indication: PRODUCT USED FOR UNKNOWN INDICATION
     Dosage: MATERNAL DOSE: 10 MG, 2 DF PER DAY
     Route: 064
  3. RISPERDAL [Suspect]
     Active Substance: RISPERIDONE
     Indication: PRODUCT USED FOR UNKNOWN INDICATION
     Dosage: MATERNAL DOSE: 3 MG, QD
     Route: 064
  4. STILNOX [Suspect]
     Active Substance: ZOLPIDEM TARTRATE
     Indication: PRODUCT USED FOR UNKNOWN INDICATION
     Dosage: MATERNAL DOSE: 10 MG, QD
     Route: 064
  5. TEGRETOL [Suspect]
     Active Substance: CARBAMAZEPINE
     Dosage: MATERNAL DOSE: 600 MG, 3 DF PER DAY UP ON PREGNENCY DIAGNOSIS
     Route: 064
  6. FOLIC ACID. [Concomitant]
     Active Substance: FOLIC ACID
     Indication: PRODUCT USED FOR UNKNOWN INDICATION
     Dosage: MATERNAL DOSE: 5 MG/DAY
     Route: 064

REACTIONS (2)
  - Testicular retraction [Unknown]
  - Hypospadias [Unknown]

NARRATIVE: CASE EVENT DATE: 20141026
